FAERS Safety Report 25020285 (Version 1)
Quarter: 2025Q1

REPORT INFORMATION
  Report Type: Spontaneous
  Country: US (occurrence: US)
  Receive Date: 20250227
  Receipt Date: 20250227
  Transmission Date: 20250408
  Serious: No
  Sender: GALDERMA
  Company Number: US-GALDERMA-US2024016761

PATIENT

DRUGS (1)
  1. NEMLUVIO [Suspect]
     Active Substance: NEMOLIZUMAB-ILTO
     Indication: Neurodermatitis
     Route: 030

REACTIONS (3)
  - Eczema [Recovering/Resolving]
  - Abdominal pain upper [Recovering/Resolving]
  - Incorrect route of product administration [Recovered/Resolved]
